FAERS Safety Report 18291474 (Version 2)
Quarter: 2020Q4

REPORT INFORMATION
  Report Type: Report from Study
  Country: IT (occurrence: IT)
  Receive Date: 20200921
  Receipt Date: 20201029
  Transmission Date: 20210113
  Serious: Yes (Hospitalization, Other)
  Sender: FDA-Public Use
  Company Number: NVSC2020IT255257

PATIENT
  Age: 66 Year
  Sex: Female
  Weight: 63 kg

DRUGS (1)
  1. FINGOLIMOD. [Suspect]
     Active Substance: FINGOLIMOD
     Indication: MULTIPLE SCLEROSIS
     Dosage: 0.5 MG, QD
     Route: 048
     Dates: start: 20131111

REACTIONS (16)
  - COVID-19 pneumonia [Unknown]
  - B-lymphocyte count decreased [Unknown]
  - Pyrexia [Recovered/Resolved]
  - Fatigue [Recovered/Resolved]
  - Leukopenia [Not Recovered/Not Resolved]
  - Natural killer cell count increased [Unknown]
  - Anaphylactic shock [Unknown]
  - COVID-19 [Recovered/Resolved]
  - Dyspnoea [Recovered/Resolved]
  - Cough [Recovered/Resolved]
  - Gamma-glutamyltransferase increased [Recovered/Resolved]
  - CD4 lymphocytes decreased [Unknown]
  - Lymphopenia [Unknown]
  - Asthenia [Unknown]
  - Transaminases increased [Recovered/Resolved]
  - T-lymphocyte count decreased [Unknown]

NARRATIVE: CASE EVENT DATE: 202003
